FAERS Safety Report 7535392-8 (Version None)
Quarter: 2011Q2

REPORT INFORMATION
  Report Type: 
  Country: None (occurrence: None)
  Receive Date: 20110609
  Receipt Date: 20080506
  Transmission Date: 20111010
  Serious: Yes (Death)
  Sender: FDA-Public Use
  Company Number: PHHY2008BR07255

PATIENT
  Age: 86 Year
  Sex: Female

DRUGS (2)
  1. DIOVAN [Suspect]
     Indication: HYPERTENSION
     Dosage: ONCE DAILY
     Route: 048
  2. TRILEPTAL [Suspect]
     Dosage: 600 MG, UNK

REACTIONS (1)
  - DEATH [None]
